FAERS Safety Report 13998050 (Version 1)
Quarter: 2017Q3

REPORT INFORMATION
  Report Type: Spontaneous
  Country: US (occurrence: None)
  Receive Date: 20170921
  Receipt Date: 20170921
  Transmission Date: 20171128
  Serious: Yes (Hospitalization)
  Sender: FDA-Public Use
  Company Number: None

PATIENT
  Age: 51 Year
  Sex: Female

DRUGS (4)
  1. TOBI [Concomitant]
     Active Substance: TOBRAMYCIN
  2. CAYSTON [Suspect]
     Active Substance: AZTREONAM
     Indication: CYSTIC FIBROSIS
     Dosage: DOSE AMOUNT - 1 VIAL?ROUTE - NEBULIZER
     Dates: start: 20140207
  3. ORKAMBI [Concomitant]
     Active Substance: IVACAFTOR\LUMACAFTOR
  4. PULMOZYME [Suspect]
     Active Substance: DORNASE ALFA
     Indication: CYSTIC FIBROSIS
     Dates: start: 20150622

REACTIONS (1)
  - Cystic fibrosis [None]

NARRATIVE: CASE EVENT DATE: 20170920
